FAERS Safety Report 6169628-5 (Version None)
Quarter: 2009Q2

REPORT INFORMATION
  Report Type: 
  Country: None (occurrence: None)
  Receive Date: 20090424
  Receipt Date: 20090204
  Transmission Date: 20091009
  Serious: No
  Sender: FDA-Public Use
  Company Number: ALL1-2009-00289

PATIENT
  Age: 13 Year
  Sex: Male
  Weight: 108.8 kg

DRUGS (5)
  1. VYVANSE [Suspect]
     Indication: ATTENTION DEFICIT/HYPERACTIVITY DISORDER
     Dosage: 1X/DAY, QD, ORAL, 50 MG, 1X/DAY, QD, ORAL
     Route: 048
     Dates: start: 20080201, end: 20080201
  2. VYVANSE [Suspect]
     Indication: ATTENTION DEFICIT/HYPERACTIVITY DISORDER
     Dosage: 1X/DAY, QD, ORAL, 50 MG, 1X/DAY, QD, ORAL
     Route: 048
     Dates: start: 20081201
  3. ALBUTEROL [Concomitant]
  4. SINGULAIR [Concomitant]
  5. LORTADINE (LORATADINE) [Concomitant]

REACTIONS (2)
  - MEMORY IMPAIRMENT [None]
  - OFF LABEL USE [None]
